FAERS Safety Report 25355289 (Version 1)
Quarter: 2025Q2

REPORT INFORMATION
  Report Type: Spontaneous
  Country: US (occurrence: US)
  Receive Date: 20250524
  Receipt Date: 20250524
  Transmission Date: 20250717
  Serious: Yes (Other)
  Sender: SANOFI AVENTIS
  Company Number: US-SA-2025SA147883

PATIENT
  Sex: Female
  Weight: 84.09 kg

DRUGS (13)
  1. DUPIXENT [Suspect]
     Active Substance: DUPILUMAB
     Indication: Dermatitis atopic
     Dosage: 300 MG, QOW
     Route: 058
  2. DUPIXENT [Suspect]
     Active Substance: DUPILUMAB
     Indication: Asthma
  3. ESCITALOPRAM OXALATE [Concomitant]
     Active Substance: ESCITALOPRAM OXALATE
  4. MOUNJARO [Concomitant]
     Active Substance: TIRZEPATIDE
  5. ABRYSVO [Concomitant]
     Active Substance: RECOMBINANT STABILIZED RSV A PREFUSION F ANTIGEN\RECOMBINANT STABILIZED RSV B PREFUSION F ANTIGEN
  6. DESONIDE [Concomitant]
     Active Substance: DESONIDE
  7. LOVASTATIN [Concomitant]
     Active Substance: LOVASTATIN
  8. XARELTO [Concomitant]
     Active Substance: RIVAROXABAN
  9. MONTELUKAST SODIUM [Concomitant]
     Active Substance: MONTELUKAST SODIUM
  10. PREDNISONE [Concomitant]
     Active Substance: PREDNISONE
  11. GABAPENTIN [Concomitant]
     Active Substance: GABAPENTIN
  12. TORSEMIDE [Concomitant]
     Active Substance: TORSEMIDE
  13. LEVOTHYROXINE SODIUM [Concomitant]
     Active Substance: LEVOTHYROXINE SODIUM

REACTIONS (2)
  - Age-related macular degeneration [Unknown]
  - Ocular demodicosis [Unknown]
